FAERS Safety Report 8932490 (Version 1)
Quarter: 2012Q4

REPORT INFORMATION
  Report Type: Spontaneous
  Country: US (occurrence: None)
  Receive Date: 20121126
  Receipt Date: 20121126
  Transmission Date: 20130627
  Serious: Yes (Death)
  Sender: FDA-Public Use
  Company Number: None

PATIENT
  Age: 67 Year
  Sex: Female
  Weight: 44.45 kg

DRUGS (1)
  1. NICOTINE PATCH 14MG ALERE WELLBEING [Suspect]
     Route: 062
     Dates: start: 20120626, end: 20120717

REACTIONS (3)
  - Dyspnoea [None]
  - Neoplasm recurrence [None]
  - Lung neoplasm malignant [None]
